FAERS Safety Report 7226220-9 (Version None)
Quarter: 2011Q1

REPORT INFORMATION
  Report Type: 
  Country: None (occurrence: None)
  Receive Date: 20110114
  Receipt Date: 20110103
  Transmission Date: 20110831
  Serious: Yes (Hospitalization)
  Sender: FDA-Public Use
  Company Number: PHHY2010CO53624

PATIENT
  Sex: Male

DRUGS (4)
  1. BETALOC ZOK [Concomitant]
     Dosage: 50 MG, QD
  2. LASIX [Concomitant]
     Dosage: 1 DF, UNK
  3. EXFORGE [Suspect]
     Dosage: 160 MG OF VALS AND 10 MG OF AMLO
     Route: 048
     Dates: start: 20080101
  4. ASPIRIN [Concomitant]
     Dosage: 100 MG, QD

REACTIONS (2)
  - PNEUMONIA [None]
  - RESPIRATORY DISTRESS [None]
